FAERS Safety Report 12321678 (Version 1)
Quarter: 2016Q2

REPORT INFORMATION
  Report Type: Spontaneous
  Country: MA (occurrence: None)
  Receive Date: 20160429
  Receipt Date: 20160429
  Transmission Date: 20160815
  Serious: Yes (Disabling)
  Sender: FDA-Public Use
  Company Number: None

PATIENT
  Age: 4 Year
  Sex: Male
  Weight: 15 kg

DRUGS (1)
  1. PURE SUN DEFENSE.SUNSCREEN SPRAY, 177 ML PURE SUN DEFENSE [Suspect]
     Active Substance: AVOBENZONE\HOMOSALATE\OCTISALATE\OCTOCRYLENE\OXYBENZONE
     Indication: PROPHYLAXIS AGAINST SOLAR RADIATION
     Dosage: 3 SPRAY(S) EVERY 4 HOURS APPLIED TO A SURFACE, USUALLY THE SKIN
     Route: 061
     Dates: start: 20160426, end: 20160427

REACTIONS (2)
  - Product quality issue [None]
  - Hypersensitivity [None]

NARRATIVE: CASE EVENT DATE: 20160427
